FAERS Safety Report 9607045 (Version 2)
Quarter: 2013Q4

REPORT INFORMATION
  Report Type: Spontaneous
  Country: US (occurrence: US)
  Receive Date: 20131009
  Receipt Date: 20131106
  Transmission Date: 20140711
  Serious: No
  Sender: FDA-Public Use
  Company Number: US-B.I. PHARMACEUTICALS,INC./RIDGEFIELD-2013-BI-30954BP

PATIENT
  Sex: Male

DRUGS (4)
  1. COMBIVENT [Suspect]
     Indication: CHRONIC OBSTRUCTIVE PULMONARY DISEASE
     Dosage: STRENGTH: 20 MCG / 100 MCG; DAILY DOSE: 80 MCG / 400 MCG
     Route: 055
     Dates: start: 20130715
  2. ADVAIR DISKUS [Concomitant]
     Indication: ASTHMA
     Dosage: STRENGTH: 500-500 DAILY DOSE: 1 INHALATION DAILY
     Route: 055
     Dates: start: 20130830
  3. ADVAIR DISKUS [Concomitant]
     Indication: BRONCHITIS
  4. ALBUTEROL INHALER [Concomitant]
     Indication: ASTHMA
     Dosage: 90 MCG

REACTIONS (5)
  - Dyspnoea [Recovered/Resolved]
  - Non-cardiac chest pain [Recovered/Resolved]
  - Pulmonary congestion [Recovered/Resolved]
  - Product quality issue [Recovered/Resolved]
  - Product quality issue [Recovered/Resolved]
